FAERS Safety Report 20167238 (Version 1)
Quarter: 2021Q4

REPORT INFORMATION
  Report Type: Spontaneous
  Country: IL (occurrence: IL)
  Receive Date: 20211209
  Receipt Date: 20211209
  Transmission Date: 20220303
  Serious: Yes (Hospitalization, Other)
  Sender: FDA-Public Use
  Company Number: IL-002147023-NVSC2021IL276723

PATIENT

DRUGS (8)
  1. RUXOLITINIB [Suspect]
     Active Substance: RUXOLITINIB
     Indication: Acute graft versus host disease
     Dosage: 20 MG, QD
     Route: 065
  2. CYCLOSPORINE [Suspect]
     Active Substance: CYCLOSPORINE
     Indication: Acute graft versus host disease
     Dosage: UNK
     Route: 065
     Dates: end: 20211103
  3. CYCLOSPORINE [Suspect]
     Active Substance: CYCLOSPORINE
     Dosage: UNK
     Route: 065
  4. METHYLPREDNISOLONE [Suspect]
     Active Substance: METHYLPREDNISOLONE
     Indication: Acute graft versus host disease
     Dosage: UNK
     Route: 065
  5. PREDNISONE [Concomitant]
     Active Substance: PREDNISONE
     Indication: Product used for unknown indication
     Dosage: 0.5 MG/KG, UNKNOWN
     Route: 065
  6. PREDNISONE [Concomitant]
     Active Substance: PREDNISONE
     Dosage: 2 MG/KG, UNKNOWN
     Route: 065
  7. SOLU-MEDROL [Concomitant]
     Active Substance: METHYLPREDNISOLONE SODIUM SUCCINATE
     Indication: Product used for unknown indication
     Dosage: 1.5 MG/KG, UNKNOWN
     Route: 065
  8. URSOLITE [Concomitant]
     Indication: Product used for unknown indication
     Dosage: UNK
     Route: 065

REACTIONS (8)
  - Frequent bowel movements [Unknown]
  - Chimerism [Unknown]
  - Graft versus host disease in liver [Recovering/Resolving]
  - Rash maculo-papular [Unknown]
  - Product use in unapproved indication [Unknown]
  - Graft versus host disease in skin [Recovering/Resolving]
  - Graft versus host disease in gastrointestinal tract [Not Recovered/Not Resolved]
  - Diarrhoea [Unknown]

NARRATIVE: CASE EVENT DATE: 20211102
